FAERS Safety Report 11914396 (Version 1)
Quarter: 2016Q1

REPORT INFORMATION
  Report Type: Spontaneous
  Country: JP (occurrence: JP)
  Receive Date: 20160113
  Receipt Date: 20160113
  Transmission Date: 20160526
  Serious: Yes (Hospitalization)
  Sender: FDA-Public Use
  Company Number: JP-JNJFOC-20151122863

PATIENT
  Age: 83 Year
  Sex: Male
  Weight: 53 kg

DRUGS (9)
  1. PITAVASTATIN CA [Concomitant]
     Route: 048
  2. REMICADE [Suspect]
     Active Substance: INFLIXIMAB
     Indication: ERYTHRODERMIC PSORIASIS
     Route: 042
     Dates: start: 20151030
  3. PREDNISOLONE. [Suspect]
     Active Substance: PREDNISOLONE
     Indication: ERYTHRODERMIC PSORIASIS
     Route: 048
     Dates: start: 20151030
  4. PREDNISOLONE. [Suspect]
     Active Substance: PREDNISOLONE
     Indication: ERYTHRODERMIC PSORIASIS
     Route: 048
     Dates: start: 20151016, end: 20151029
  5. LANSOPRAZOLE. [Concomitant]
     Active Substance: LANSOPRAZOLE
     Route: 048
     Dates: start: 20150305
  6. ETODOLAC. [Concomitant]
     Active Substance: ETODOLAC
     Route: 048
     Dates: end: 20151116
  7. ANFLAVATE [Concomitant]
     Active Substance: BETAMETHASONE BUTYRATE PROPIONATE
     Indication: ERYTHRODERMIC PSORIASIS
     Dosage: ADEQUATE DOSE
     Route: 061
     Dates: start: 20150917
  8. ACTONEL [Concomitant]
     Active Substance: RISEDRONATE SODIUM
     Route: 048
     Dates: start: 20150827
  9. REMICADE [Suspect]
     Active Substance: INFLIXIMAB
     Indication: ERYTHRODERMIC PSORIASIS
     Route: 042
     Dates: start: 20151016

REACTIONS (4)
  - Sepsis [Recovered/Resolved]
  - Product use issue [Unknown]
  - Prerenal failure [Recovering/Resolving]
  - Off label use [Unknown]

NARRATIVE: CASE EVENT DATE: 2015
